FAERS Safety Report 5090355-X (Version None)
Quarter: 2006Q3

REPORT INFORMATION
  Report Type: 
  Country: None (occurrence: None)
  Receive Date: 20060828
  Receipt Date: 20060726
  Transmission Date: 20061208
  Serious: No
  Sender: FDA-Public Use
  Company Number: US-GLAXOSMITHKLINE-A0613715A

PATIENT
  Age: 53 Year
  Sex: Female

DRUGS (3)
  1. WELLBUTRIN XL [Suspect]
     Indication: DRUG USE FOR UNKNOWN INDICATION
     Dosage: 300MG PER DAY
     Route: 048
  2. XANAX [Concomitant]
  3. POTASSIUM [Concomitant]

REACTIONS (2)
  - PANIC REACTION [None]
  - THERAPEUTIC RESPONSE UNEXPECTED [None]
